APPROVED DRUG PRODUCT: ALPRAZOLAM
Active Ingredient: ALPRAZOLAM
Strength: 2MG
Dosage Form/Route: TABLET;ORAL
Application: A074909 | Product #001 | TE Code: AB
Applicant: SANDOZ INC
Approved: Mar 25, 1998 | RLD: No | RS: No | Type: RX